FAERS Safety Report 8227960-5 (Version None)
Quarter: 2012Q1

REPORT INFORMATION
  Report Type: 
  Country: None (occurrence: None)
  Receive Date: 20120322
  Receipt Date: 20120314
  Transmission Date: 20120608
  Serious: Yes (Hospitalization)
  Sender: FDA-Public Use
  Company Number: PHHY2012PT022498

PATIENT
  Age: 74 Year
  Sex: Female

DRUGS (4)
  1. FLUVASTATIN [Concomitant]
  2. METFORMIN HCL [Concomitant]
  3. INDAPAMIDE [Suspect]
     Indication: HYPERTENSION
  4. PERINDOPRIL ERBUMINE [Concomitant]

REACTIONS (4)
  - STRESS CARDIOMYOPATHY [None]
  - CHEST PAIN [None]
  - NAUSEA [None]
  - HYPONATRAEMIA [None]
